FAERS Safety Report 25035446 (Version 2)
Quarter: 2025Q2

REPORT INFORMATION
  Report Type: Report from Study
  Country: CH (occurrence: CH)
  Receive Date: 20250304
  Receipt Date: 20250410
  Transmission Date: 20250717
  Serious: Yes (Hospitalization)
  Sender: ROCHE
  Company Number: CH-ROCHE-10000218715

PATIENT
  Age: 72 Year
  Sex: Female
  Weight: 120 kg

DRUGS (4)
  1. VABYSMO [Suspect]
     Active Substance: FARICIMAB-SVOA
     Indication: Diabetic retinal oedema
     Dosage: RIGHT EYE?ON 16-DEC-2024, SHE RECEIVED MOST RECENT DOSE OF FARICIMAB 120 MG.?DOSE: 6 MG/0.05 ML
     Route: 050
     Dates: start: 20230719
  2. VABYSMO [Suspect]
     Active Substance: FARICIMAB-SVOA
     Dosage: LEFT EYE?ON 16-DEC-2024, SHE RECEIVED MOST RECENT DOSE OF FARICIMAB 120 MG.?DOSE: 6 MG/0.05 ML
     Route: 050
     Dates: start: 20230726
  3. METFORMIN HYDROCHLORIDE [Concomitant]
     Active Substance: METFORMIN HYDROCHLORIDE
     Dates: start: 1990
  4. PRED FORTE [Concomitant]
     Active Substance: PREDNISOLONE ACETATE
     Dates: start: 20240924

REACTIONS (1)
  - Hypoventilation [Recovered/Resolved]

NARRATIVE: CASE EVENT DATE: 20250212
